FAERS Safety Report 9336646 (Version 1)
Quarter: 2013Q2

REPORT INFORMATION
  Report Type: Spontaneous
  Country: IN (occurrence: IN)
  Receive Date: 20130607
  Receipt Date: 20130607
  Transmission Date: 20140414
  Serious: Yes (Hospitalization, Other)
  Sender: FDA-Public Use
  Company Number: PHHY2013IN056139

PATIENT
  Age: 18 Year
  Sex: Female

DRUGS (1)
  1. DEFEROXAMINE [Suspect]
     Dosage: 10 TO 15 MG/KG/HR
     Route: 042

REACTIONS (21)
  - Neurotoxicity [Unknown]
  - Gastrointestinal toxicity [Unknown]
  - Metabolic acidosis [Unknown]
  - Vomiting [Unknown]
  - Abdominal pain [Unknown]
  - Hyperkalaemia [Unknown]
  - Electrocardiogram T wave peaked [Unknown]
  - Electrocardiogram QT shortened [Unknown]
  - Hypokalaemia [Unknown]
  - White blood cell count increased [Unknown]
  - Blood glucose increased [Unknown]
  - PO2 increased [Unknown]
  - PCO2 [Unknown]
  - Blood bicarbonate decreased [Unknown]
  - Base excess [Unknown]
  - Blood potassium decreased [Unknown]
  - Blood sodium increased [Unknown]
  - Lethargy [Unknown]
  - Mental status changes [Unknown]
  - Hypotension [Unknown]
  - Accidental overdose [Unknown]
